FAERS Safety Report 5207415-2 (Version None)
Quarter: 2007Q1

REPORT INFORMATION
  Report Type: 
  Country: None (occurrence: None)
  Receive Date: 20070112
  Receipt Date: 20070104
  Transmission Date: 20070707
  Serious: Yes (Hospitalization)
  Sender: FDA-Public Use
  Company Number: US-SHR-US-2006-035935

PATIENT
  Age: 59 Year
  Sex: Male
  Weight: 66.6 kg

DRUGS (13)
  1. BETASERON [Suspect]
     Dosage: 8 MIU, EVERY 2D
     Route: 058
     Dates: start: 20040810
  2. ASPIRIN [Concomitant]
     Dosage: 81 MG, 1X/DAY
  3. NEXIUM [Concomitant]
     Dosage: 40 MG, 1X/DAY
  4. HYDROCHLOROTHIAZIDE [Concomitant]
     Dosage: 25 MG, 1X/DAY
  5. ALLOPURINOL SODIUM [Concomitant]
     Dosage: UNK, 1X/DAY
  6. POTASSIUM ACETATE [Concomitant]
     Dosage: 20 MEQ, 2X/DAY
  7. BACLOFEN [Concomitant]
     Dosage: 10 MG, 3X/DAY
  8. ASACOL [Concomitant]
     Dosage: 3 TAB(S), 2X/DAY
  9. VITAMIN CAP [Concomitant]
  10. CALCIUM CITRATE [Concomitant]
  11. DURAGESIC-100 [Concomitant]
     Indication: PAIN
     Dosage: 75 UNK, EVERY 3D
     Route: 061
  12. EFEXOR                                  /USA/ [Concomitant]
     Dosage: 75 MG, 1X/DAY
  13. TRILEPTAL [Concomitant]
     Dosage: 600 MG, 2X/DAY

REACTIONS (2)
  - HEART RATE INCREASED [None]
  - HYPOTHYROIDISM [None]
